FAERS Safety Report 5488694-3 (Version None)
Quarter: 2007Q4

REPORT INFORMATION
  Report Type: 
  Country: None (occurrence: None)
  Receive Date: 20071017
  Receipt Date: 20071005
  Transmission Date: 20080405
  Serious: Yes (Other)
  Sender: FDA-Public Use
  Company Number: JP-PFIZER INC-2007084168

PATIENT
  Sex: Male

DRUGS (2)
  1. GABAPEN [Suspect]
     Dosage: DAILY DOSE:1200MG
     Route: 048
  2. EXCEGRAN [Concomitant]
     Route: 048

REACTIONS (3)
  - RESPIRATORY DEPRESSION [None]
  - SOMNOLENCE [None]
  - TREMOR [None]
